FAERS Safety Report 22058959 (Version 1)
Quarter: 2023Q1

REPORT INFORMATION
  Report Type: Spontaneous
  Country: JP (occurrence: JP)
  Receive Date: 20230303
  Receipt Date: 20230303
  Transmission Date: 20230418
  Serious: Yes (Hospitalization)
  Sender: FDA-Public Use
  Company Number: None

PATIENT
  Age: 60 Year
  Sex: Male

DRUGS (5)
  1. PREDNISOLONE [Suspect]
     Active Substance: PREDNISOLONE
     Indication: Castleman^s disease
     Dosage: 60 MILLIGRAM, QD
     Route: 048
  2. GANCICLOVIR [Suspect]
     Active Substance: GANCICLOVIR
     Indication: Cytomegalovirus infection
     Dosage: UNK
     Route: 065
  3. CYCLOSPORINE [Suspect]
     Active Substance: CYCLOSPORINE
     Indication: Castleman^s disease
     Dosage: 75 MILLIGRAM, QD
     Route: 065
  4. TOCILIZUMAB [Suspect]
     Active Substance: TOCILIZUMAB
     Indication: Castleman^s disease
     Dosage: 8 MILLIGRAM/KILOGRAM
     Route: 065
  5. METHYLPREDNISOLONE [Suspect]
     Active Substance: METHYLPREDNISOLONE
     Indication: Castleman^s disease
     Dosage: 1000 MILLIGRAM, QD, PULSE THERAPY
     Route: 042

REACTIONS (4)
  - Cytomegalovirus infection [Recovered/Resolved]
  - BK virus infection [Recovered/Resolved]
  - Thrombocytopenia [Recovered/Resolved]
  - Blood creatinine increased [Recovered/Resolved]
